FAERS Safety Report 9732192 (Version 1)
Quarter: 2013Q4

REPORT INFORMATION
  Report Type: Spontaneous
  Country: JP (occurrence: JP)
  Receive Date: 20131204
  Receipt Date: 20131204
  Transmission Date: 20140711
  Serious: Yes (Other)
  Sender: FDA-Public Use
  Company Number: JP-PFIZER INC-2013343543

PATIENT
  Age: 82 Year
  Sex: Male
  Weight: 64.2 kg

DRUGS (2)
  1. JZOLOFT [Suspect]
     Dosage: 25 MG, DAILY
     Route: 048
     Dates: start: 20131002, end: 20131004
  2. JZOLOFT [Suspect]
     Dosage: 50 MG/DAY
     Route: 048
     Dates: start: 20131005, end: 20131007

REACTIONS (4)
  - Liver disorder [Recovering/Resolving]
  - Alanine aminotransferase increased [Recovering/Resolving]
  - Aspartate aminotransferase increased [Recovering/Resolving]
  - Blood bilirubin increased [Recovering/Resolving]
